FAERS Safety Report 24565274 (Version 3)
Quarter: 2025Q1

REPORT INFORMATION
  Report Type: Report from Study
  Country: JP (occurrence: JP)
  Receive Date: 20241030
  Receipt Date: 20250212
  Transmission Date: 20250409
  Serious: Yes (Hospitalization)
  Sender: ABBVIE
  Company Number: JP-ABBVIE-5819240

PATIENT
  Age: 54 Year
  Sex: Female

DRUGS (19)
  1. VYALEV [Suspect]
     Active Substance: FOSCARBIDOPA\FOSLEVODOPA
     Indication: Parkinson^s disease
     Route: 058
     Dates: start: 20240509
  2. VYALEV [Suspect]
     Active Substance: FOSCARBIDOPA\FOSLEVODOPA
     Route: 058
     Dates: start: 20240529
  3. VYALEV [Suspect]
     Active Substance: FOSCARBIDOPA\FOSLEVODOPA
     Route: 058
     Dates: start: 20240510
  4. VYALEV [Suspect]
     Active Substance: FOSCARBIDOPA\FOSLEVODOPA
     Route: 058
     Dates: start: 20240701, end: 20240703
  5. VYALEV [Suspect]
     Active Substance: FOSCARBIDOPA\FOSLEVODOPA
     Route: 058
     Dates: start: 20240515
  6. VYALEV [Suspect]
     Active Substance: FOSCARBIDOPA\FOSLEVODOPA
     Route: 058
     Dates: end: 20240918
  7. ZONISAMIDE [Concomitant]
     Active Substance: ZONISAMIDE
     Indication: Parkinson^s disease
     Dosage: 50 MILLIGRAM
     Route: 048
  8. CARBIDOPA AND LEVODOPA [Concomitant]
     Active Substance: CARBIDOPA\LEVODOPA
     Indication: Parkinson^s disease
     Route: 048
     Dates: start: 20240522
  9. CARBIDOPA AND LEVODOPA [Concomitant]
     Active Substance: CARBIDOPA\LEVODOPA
     Indication: Parkinson^s disease
     Dosage: 100 MILLIGRAM?FREQUENCY TEXT: PRN
     Route: 048
     Dates: start: 20240528
  10. CARBIDOPA AND LEVODOPA [Concomitant]
     Active Substance: CARBIDOPA\LEVODOPA
     Indication: Parkinson^s disease
     Route: 048
  11. ISTRADEFYLLINE [Concomitant]
     Active Substance: ISTRADEFYLLINE
     Indication: Parkinson^s disease
     Dosage: 20 MILLIGRAM
     Route: 048
  12. AMANTADINE HYDROCHLORIDE [Concomitant]
     Active Substance: AMANTADINE HYDROCHLORIDE
     Indication: Parkinson^s disease
     Dosage: 100 MILLIGRAM
     Route: 048
     Dates: start: 20240515
  13. AMANTADINE HYDROCHLORIDE [Concomitant]
     Active Substance: AMANTADINE HYDROCHLORIDE
     Indication: Parkinson^s disease
     Route: 048
     Dates: end: 20240514
  14. SAFINAMIDE MESYLATE [Concomitant]
     Active Substance: SAFINAMIDE MESYLATE
     Indication: Parkinson^s disease
     Dosage: 100 MILLIGRAM
     Route: 048
     Dates: start: 20240604
  15. SAFINAMIDE MESYLATE [Concomitant]
     Active Substance: SAFINAMIDE MESYLATE
     Indication: Parkinson^s disease
     Dosage: 50 MILLIGRAM
     Route: 048
     Dates: end: 20240603
  16. OPICAPONE [Concomitant]
     Active Substance: OPICAPONE
     Indication: Parkinson^s disease
     Dosage: 25 MILLIGRAM
     Route: 048
     Dates: start: 20240521
  17. NEUPRO [Suspect]
     Active Substance: ROTIGOTINE
     Indication: Parkinson^s disease
     Dosage: 22.5 MILLIGRAM
     Route: 062
     Dates: start: 20240621, end: 20240630
  18. NEUPRO [Suspect]
     Active Substance: ROTIGOTINE
     Indication: Parkinson^s disease
     Dosage: 18 MILLIGRAM
     Route: 062
     Dates: start: 20240701, end: 20240705
  19. NEUPRO [Suspect]
     Active Substance: ROTIGOTINE
     Indication: Parkinson^s disease
     Dosage: 18 MILLIGRAM, DECREASED
     Route: 062
     Dates: end: 20240620

REACTIONS (10)
  - Asthenia [Unknown]
  - Hallucination, auditory [Recovered/Resolved]
  - Asthenia [Unknown]
  - Anxiety disorder [Recovering/Resolving]
  - Infusion site erythema [Recovered/Resolved]
  - Hallucination [Recovered/Resolved]
  - Infusion site induration [Recovered/Resolved]
  - Unevaluable event [Unknown]
  - Hallucination, olfactory [Recovered/Resolved]
  - Hallucination, visual [Recovered/Resolved]

NARRATIVE: CASE EVENT DATE: 20240101
